FAERS Safety Report 6137351-9 (Version None)
Quarter: 2009Q1

REPORT INFORMATION
  Report Type: 
  Country: None (occurrence: None)
  Receive Date: 20090330
  Receipt Date: 20090320
  Transmission Date: 20090719
  Serious: Yes (Other)
  Sender: FDA-Public Use
  Company Number: GB-B.I. PHARMACEUTICALS,INC./RIDGEFIELD-2009-UK-00261UK

PATIENT
  Age: 38 Year
  Sex: Female

DRUGS (13)
  1. VIRAMUNE [Suspect]
     Indication: HIV INFECTION
     Route: 065
  2. DARUNAVIR [Suspect]
     Indication: HIV INFECTION
     Dosage: 600MG
     Route: 065
  3. DIDANOSINE [Suspect]
     Indication: HIV INFECTION
     Route: 065
  4. EFAVIRENZ [Suspect]
     Indication: HIV INFECTION
     Route: 065
  5. ENFUVIRTIDE [Suspect]
     Indication: HIV INFECTION
     Dosage: 90MG
     Route: 058
  6. ETRAVIRINE [Suspect]
     Indication: HIV INFECTION
     Dosage: 200MG
     Route: 065
  7. LAMIVUDINE [Suspect]
     Indication: HIV INFECTION
     Route: 065
  8. LOPINAVIR [Suspect]
     Indication: HIV INFECTION
     Route: 065
  9. NELFINAVIR [Suspect]
     Indication: HIV INFECTION
     Route: 065
  10. RITONAVIR [Suspect]
     Indication: HIV INFECTION
     Dosage: 100MCG
     Route: 065
  11. TENOFOVIR [Suspect]
     Indication: HIV INFECTION
     Route: 065
  12. TRUVADA [Suspect]
     Indication: HIV INFECTION
     Route: 065
  13. ZIDOVUDINE [Suspect]
     Indication: HIV INFECTION
     Route: 065

REACTIONS (4)
  - ANAEMIA [None]
  - BLOOD TRIGLYCERIDES INCREASED [None]
  - HIV INFECTION [None]
  - INJECTION SITE REACTION [None]
